FAERS Safety Report 4932103-7 (Version None)
Quarter: 2006Q1

REPORT INFORMATION
  Report Type: 
  Country: None (occurrence: None)
  Receive Date: 20060303
  Receipt Date: 20050906
  Transmission Date: 20060701
  Serious: Yes (Other)
  Sender: FDA-Public Use
  Company Number: PHEH2005US09892

PATIENT
  Age: 62 Year
  Sex: Male

DRUGS (9)
  1. ZOMETA [Suspect]
     Indication: MULTIPLE MYELOMA
     Dosage: 4 MG, MONTHLY
     Dates: start: 20030507, end: 20050901
  2. ATENOLOL [Concomitant]
  3. VINCRISTINE + ADRIAMYCIN + DEXAMETHASONE [Concomitant]
     Dosage: UNK, UNK
     Dates: start: 20030721, end: 20030818
  4. CYTOXAN [Concomitant]
     Dates: start: 20030918, end: 20031113
  5. BCNU [Concomitant]
  6. VINCRISTINE [Concomitant]
     Dates: start: 20030919, end: 20031113
  7. ADRIAMYCIN PFS [Concomitant]
  8. METHYLPREDNISOLONE [Concomitant]
     Dates: start: 20030918, end: 20031113
  9. MELPHALAN [Concomitant]
     Dates: start: 20040115

REACTIONS (8)
  - BONE DISORDER [None]
  - DENTAL CARIES [None]
  - ORAL SOFT TISSUE DISORDER [None]
  - OSTEONECROSIS [None]
  - PAIN [None]
  - SWELLING [None]
  - TOOTH DISORDER [None]
  - TOOTH EXTRACTION [None]
